FAERS Safety Report 23789759 (Version 4)
Quarter: 2024Q4

REPORT INFORMATION
  Report Type: Spontaneous
  Country: US (occurrence: US)
  Receive Date: 20240426
  Receipt Date: 20241025
  Transmission Date: 20250115
  Serious: Yes (Hospitalization, Disabling, Other)
  Sender: BAYER HEALTHCARE PHARMACEUTICALS INC.
  Company Number: US-BAYER-2024A059782

PATIENT
  Age: 41 Year
  Sex: Female
  Weight: 27.211 kg

DRUGS (11)
  1. CIPRO [Suspect]
     Active Substance: CIPROFLOXACIN HYDROCHLORIDE
     Indication: Urinary tract infection
     Dosage: 500 MG, BID
     Route: 048
     Dates: start: 20210417, end: 20210418
  2. MACROBID [Concomitant]
     Active Substance: NITROFURANTOIN\NITROFURANTOIN MONOHYDRATE
     Dosage: UNK
     Dates: start: 20210416
  3. GABAPENTIN [Concomitant]
     Active Substance: GABAPENTIN
  4. LORAZEPAM [Concomitant]
     Active Substance: LORAZEPAM
     Dosage: 4 MG
  5. OXYCODONE [Concomitant]
     Active Substance: OXYCODONE
     Indication: Anxiety
     Dosage: EVERY 6 HOURS
  6. OXYCODONE [Concomitant]
     Active Substance: OXYCODONE
     Indication: Pain
  7. CROMOLYN [Concomitant]
     Active Substance: CROMOLYN
  8. HYDROXYZINE [Concomitant]
     Active Substance: HYDROXYZINE HYDROCHLORIDE
  9. FAMOTIDINE [Concomitant]
     Active Substance: FAMOTIDINE
  10. NALTREXONE [Concomitant]
     Active Substance: NALTREXONE
  11. NITROFURANTOIN [Concomitant]
     Active Substance: NITROFURANTOIN
     Indication: Urinary tract infection
     Dosage: 1 DF, BID
     Route: 048
     Dates: start: 20230323, end: 20230328

REACTIONS (91)
  - Blindness [None]
  - Illness [None]
  - Hypotension [None]
  - Heart rate decreased [None]
  - Rash [None]
  - Urticaria [None]
  - Hypersensitivity [None]
  - Loss of consciousness [None]
  - Duodenal polyp [None]
  - Peptic ulcer [None]
  - Mast cell activation syndrome [None]
  - Cachexia [None]
  - Starvation [None]
  - Neuropathy peripheral [None]
  - Oedema [None]
  - Hospice care [None]
  - Wound [None]
  - Wound complication [None]
  - Skin wound [None]
  - Mobility decreased [None]
  - Alopecia [None]
  - Pallor [None]
  - Acne [None]
  - Dysphagia [None]
  - Palliative care [None]
  - Oral candidiasis [None]
  - Pain in extremity [None]
  - Paraesthesia [None]
  - Inflammation [None]
  - Tendon pain [None]
  - Headache [None]
  - Neurological symptom [None]
  - C-reactive protein increased [None]
  - Myalgia [None]
  - Weight decreased [None]
  - Malnutrition [None]
  - Pain [None]
  - Ulcer [None]
  - Neuralgia [None]
  - Muscular weakness [None]
  - Dysphagia [None]
  - Nausea [None]
  - Pyrexia [None]
  - Asthenia [None]
  - Migraine [None]
  - Headache [None]
  - Nightmare [None]
  - Insomnia [None]
  - Depression [None]
  - Balance disorder [None]
  - Mobility decreased [None]
  - Gait disturbance [None]
  - Loss of personal independence in daily activities [None]
  - Coordination abnormal [None]
  - Skin injury [None]
  - Emotional distress [None]
  - Hypoacusis [None]
  - Allodynia [None]
  - Burning sensation [None]
  - Clubbing [None]
  - Skin discolouration [None]
  - Peripheral swelling [None]
  - Feeding disorder [None]
  - Lacrimation increased [None]
  - Rhinorrhoea [None]
  - Dizziness [None]
  - Dizziness [None]
  - Abdominal pain [None]
  - Vulvovaginal discomfort [None]
  - Vaginal discharge [None]
  - Pyuria [None]
  - Haematuria [None]
  - Blister [None]
  - Rash pruritic [None]
  - Adverse food reaction [None]
  - Hypertension [None]
  - Hypovolaemia [None]
  - Malnutrition [None]
  - Polycystic ovaries [None]
  - Tendonitis [None]
  - General physical health deterioration [None]
  - Presyncope [None]
  - Skin burning sensation [None]
  - Dyspnoea [None]
  - Flushing [None]
  - Cough [None]
  - Palpitations [None]
  - Fatigue [None]
  - Muscle spasms [None]
  - Arthralgia [None]
  - Skin burning sensation [None]

NARRATIVE: CASE EVENT DATE: 20210401
